FAERS Safety Report 13580815 (Version 1)
Quarter: 2017Q2

REPORT INFORMATION
  Report Type: Spontaneous
  Country: AT (occurrence: AT)
  Receive Date: 20170525
  Receipt Date: 20170525
  Transmission Date: 20170830
  Serious: Yes (Hospitalization)
  Sender: FDA-Public Use
  Company Number: AT-JNJFOC-20170521597

PATIENT
  Age: 59 Year
  Sex: Male
  Weight: 80 kg

DRUGS (3)
  1. OLEOVIT D3 [Concomitant]
     Active Substance: CHOLECALCIFEROL
     Indication: PROPHYLAXIS
     Dosage: PROPHYLAXIS
     Route: 065
     Dates: start: 2017
  2. SIMPONI [Suspect]
     Active Substance: GOLIMUMAB
     Indication: RHEUMATOID ARTHRITIS
     Route: 058
     Dates: start: 201101
  3. SERACTIL [Concomitant]
     Active Substance: DEXIBUPROFEN
     Indication: RHEUMATOID ARTHRITIS
     Route: 065
     Dates: start: 2010

REACTIONS (5)
  - Tendon operation [Unknown]
  - Hospitalisation [Not Recovered/Not Resolved]
  - Tendon rupture [Not Recovered/Not Resolved]
  - Off label use [Unknown]
  - Product use issue [Unknown]

NARRATIVE: CASE EVENT DATE: 201101
